FAERS Safety Report 14837783 (Version 1)
Quarter: 2018Q2

REPORT INFORMATION
  Report Type: Spontaneous
  Country: None (occurrence: US)
  Receive Date: 20180502
  Receipt Date: 20180502
  Transmission Date: 20180711
  Serious: No
  Sender: FDA-Public Use
  Company Number: US-SPEAR PHARMACEUTICALS-2047019

PATIENT
  Age: 66 Year
  Sex: Female
  Weight: 68.18 kg

DRUGS (1)
  1. FLUOROURACIL. [Suspect]
     Active Substance: FLUOROURACIL
     Indication: ACTINIC KERATOSIS
     Route: 061
     Dates: start: 20180324, end: 20180327

REACTIONS (3)
  - Middle insomnia [None]
  - Pain in extremity [Recovering/Resolving]
  - Pain in extremity [None]
